FAERS Safety Report 15651875 (Version 4)
Quarter: 2019Q2

REPORT INFORMATION
  Report Type: Spontaneous
  Country: BR (occurrence: BR)
  Receive Date: 20181123
  Receipt Date: 20190429
  Transmission Date: 20190711
  Serious: Yes (Hospitalization, Other)
  Sender: FDA-Public Use
  Company Number: BR-GLAXOSMITHKLINE-BR2018GSK210913

PATIENT
  Sex: Female
  Weight: 63 kg

DRUGS (1)
  1. BENLYSTA [Suspect]
     Active Substance: BELIMUMAB
     Indication: SYSTEMIC LUPUS ERYTHEMATOSUS
     Dosage: 650 MG, UNK

REACTIONS (12)
  - Pain [Not Recovered/Not Resolved]
  - Pharyngitis [Unknown]
  - Overdose [Unknown]
  - Malaise [Not Recovered/Not Resolved]
  - Product dose omission [Not Recovered/Not Resolved]
  - Weight decreased [Unknown]
  - Infection [Recovered/Resolved]
  - Swelling [Unknown]
  - Viral infection [Recovered/Resolved]
  - Inappropriate schedule of product administration [Recovered/Resolved]
  - Hospitalisation [Recovered/Resolved]
  - Weight increased [Unknown]
